FAERS Safety Report 6963550-X (Version None)
Quarter: 2010Q3

REPORT INFORMATION
  Report Type: 
  Country: None (occurrence: None)
  Receive Date: 20100830
  Receipt Date: 20100817
  Transmission Date: 20110219
  Serious: Yes (Death, Other)
  Sender: FDA-Public Use
  Company Number: B0671347A

PATIENT

DRUGS (8)
  1. ETOPOSIDE [Suspect]
     Indication: NON-HODGKIN'S LYMPHOMA
     Dosage: 200 MG/ PER DAY
  2. MELPHALAN HYDROCHLORIDE [Suspect]
     Indication: NON-HODGKIN'S LYMPHOMA
     Dosage: 140 MG/M2 / PER DAY
  3. CYTARABINE [Suspect]
     Indication: NON-HODGKIN'S LYMPHOMA
     Dosage: 400 MG/M2 / PER DAY
  4. CARMUSTINE [Suspect]
     Indication: NON-HODGKIN'S LYMPHOMA
     Dosage: 300 MG/M2 / PER DAY
  5. GRANULOCYTE COL. STIM. FACT [Concomitant]
  6. CIPROFLOXACIN [Concomitant]
  7. FLUCONAZOLE [Concomitant]
  8. ACYCLOVIR [Concomitant]

REACTIONS (2)
  - DRUG TOXICITY [None]
  - VENOOCCLUSIVE DISEASE [None]
